FAERS Safety Report 7487542-X (Version None)
Quarter: 2011Q2

REPORT INFORMATION
  Report Type: 
  Country: None (occurrence: None)
  Receive Date: 20110511
  Receipt Date: 20110427
  Transmission Date: 20111010
  Serious: Yes (Hospitalization, Other)
  Sender: FDA-Public Use
  Company Number: 2011AP000117

PATIENT
  Age: 60 Year
  Sex: Female

DRUGS (13)
  1. ZOPICLONE (ZOPICLONE) [Suspect]
     Indication: SLEEP DISORDER
     Dosage: 3.75 MG, HS;
  2. DOSULEPIN (DOSULEPIN) [Suspect]
     Indication: DEPRESSION
     Dosage: 50 MG, QD;
  3. SIMVASTATIN [Suspect]
     Indication: PRODUCT USED FOR UNKNOWN INDICATION
     Dosage: 20 MG, QD;
  4. DIAZEPAM [Suspect]
     Indication: PRODUCT USED FOR UNKNOWN INDICATION
  5. CITALOPRAM HYDROBROMIDE [Suspect]
     Indication: PRODUCT USED FOR UNKNOWN INDICATION
  6. LYRICA [Suspect]
     Indication: GENERALISED ANXIETY DISORDER
     Dosage: 50 MG, TID, 75 MG, TID, 100 MG,TID, 200 MG,
     Dates: end: 20100913
  7. LYRICA [Suspect]
     Indication: GENERALISED ANXIETY DISORDER
     Dosage: 50 MG, TID, 75 MG, TID, 100 MG,TID, 200 MG,
     Dates: start: 20100720, end: 20100801
  8. LYRICA [Suspect]
     Indication: GENERALISED ANXIETY DISORDER
     Dosage: 50 MG, TID, 75 MG, TID, 100 MG,TID, 200 MG,
     Dates: start: 20100501
  9. ASPIRIN [Suspect]
     Indication: PRODUCT USED FOR UNKNOWN INDICATION
     Dosage: 75 MG QD,
  10. SERTRALINE HYDROCHLORIDE [Suspect]
     Indication: PRODUCT USED FOR UNKNOWN INDICATION
     Dosage: 100 MG, QD, 150 MG,
  11. ATENOLOL [Suspect]
     Indication: PRODUCT USED FOR UNKNOWN INDICATION
     Dosage: 25 MG QD;
  12. PROMETHAZINE [Suspect]
     Indication: ANXIETY
     Dosage: 50 MG, HS;
  13. PROMETHAZINE [Suspect]
     Indication: SLEEP DISORDER
     Dosage: 50 MG, HS;

REACTIONS (34)
  - MUSCLE ATROPHY [None]
  - NAUSEA [None]
  - CONFUSIONAL STATE [None]
  - SYNCOPE [None]
  - PAIN [None]
  - NO THERAPEUTIC RESPONSE [None]
  - OVERDOSE [None]
  - DIARRHOEA [None]
  - MUSCLE TWITCHING [None]
  - HYPERHIDROSIS [None]
  - LETHARGY [None]
  - SUICIDAL IDEATION [None]
  - DEPRESSED LEVEL OF CONSCIOUSNESS [None]
  - DELUSION [None]
  - PANIC ATTACK [None]
  - TREMOR [None]
  - C-REACTIVE PROTEIN INCREASED [None]
  - ANXIETY [None]
  - ORAL DISCOMFORT [None]
  - DISEASE RECURRENCE [None]
  - ANAEMIA [None]
  - DIZZINESS [None]
  - HYPOCHONDRIASIS [None]
  - MYALGIA [None]
  - URINARY TRACT INFECTION [None]
  - WEIGHT DECREASED [None]
  - INITIAL INSOMNIA [None]
  - ANHEDONIA [None]
  - MIDDLE INSOMNIA [None]
  - MACROCYTOSIS [None]
  - DECREASED APPETITE [None]
  - DEPRESSION [None]
  - MALAISE [None]
  - VOMITING [None]
